FAERS Safety Report 23306488 (Version 1)
Quarter: 2023Q4

REPORT INFORMATION
  Report Type: Spontaneous
  Country: JP (occurrence: JP)
  Receive Date: 20231218
  Receipt Date: 20231218
  Transmission Date: 20240110
  Serious: Yes (Hospitalization, Other)
  Sender: FDA-Public Use
  Company Number: JP-AstraZeneca-CH-00522799A

PATIENT

DRUGS (1)
  1. ULTOMIRIS [Suspect]
     Active Substance: RAVULIZUMAB-CWVZ
     Indication: Neuromyelitis optica spectrum disorder
     Dosage: 3000 MILLIGRAM
     Route: 065
     Dates: start: 20231117

REACTIONS (1)
  - Neuromyelitis optica spectrum disorder [Unknown]

NARRATIVE: CASE EVENT DATE: 20231124
